FAERS Safety Report 8584174-7 (Version None)
Quarter: 2012Q3

REPORT INFORMATION
  Report Type: 
  Country: None (occurrence: None)
  Receive Date: 20120810
  Receipt Date: 20120801
  Transmission Date: 20120928
  Serious: Yes (Hospitalization, Other)
  Sender: FDA-Public Use
  Company Number: FR-AMGEN-FRASP2012038866

PATIENT
  Age: 55 Year
  Sex: Female

DRUGS (11)
  1. ENBREL [Suspect]
     Indication: RHEUMATOID ARTHRITIS
     Dosage: 50 MG, WEEKLY
     Dates: start: 20101001, end: 20120501
  2. METHOTREXATE [Suspect]
     Dosage: 10 MG, WEEKLY
  3. LANSOPRAZOLE [Concomitant]
     Dosage: 15 MG, 1X/DAY
  4. FLECTOR                            /00372302/ [Concomitant]
     Dosage: UNK
     Route: 048
     Dates: start: 20090101
  5. LAMALINE                           /00764901/ [Concomitant]
     Dosage: UNK
  6. METHOTREXATE [Suspect]
     Dosage: 7.5 MG, QWK
     Dates: start: 20101221
  7. METHOTREXATE [Suspect]
     Dosage: 10 MG, WEEKLY
     Dates: start: 20090101
  8. FLECTOR                            /00372302/ [Concomitant]
     Dosage: 50 MG, 3X/DAY
     Route: 048
     Dates: start: 20100101
  9. METHOTREXATE [Suspect]
     Indication: POLYARTHRITIS
     Dosage: 15 MG, WEEKLY
  10. METHOTREXATE [Suspect]
     Dosage: 7.5 MG, WEEKLY
     Dates: start: 20101001
  11. FOLIC ACID [Concomitant]
     Dosage: UNK

REACTIONS (6)
  - PAIN [None]
  - HEMIPARESIS [None]
  - MULTIPLE SCLEROSIS [None]
  - TRANSIENT ISCHAEMIC ATTACK [None]
  - SINUS DISORDER [None]
  - DRUG INEFFECTIVE [None]
